FAERS Safety Report 6682069-7 (Version None)
Quarter: 2010Q2

REPORT INFORMATION
  Report Type: 
  Country: None (occurrence: None)
  Receive Date: 20100415
  Receipt Date: 20100405
  Transmission Date: 20101027
  Serious: Yes (Hospitalization, Other)
  Sender: FDA-Public Use
  Company Number: US-BIOGENIDEC-2010BI005959

PATIENT
  Sex: Female

DRUGS (2)
  1. AVONEX [Suspect]
     Indication: MULTIPLE SCLEROSIS
     Route: 030
     Dates: start: 20000101
  2. LISINOPRIL [Concomitant]
     Indication: HYPERTENSION

REACTIONS (7)
  - ABDOMINAL PAIN UPPER [None]
  - CARDIAC PACEMAKER INSERTION [None]
  - COUGH [None]
  - EYE OPERATION [None]
  - HEPATIC LESION [None]
  - LUNG DISORDER [None]
  - URINARY INCONTINENCE [None]
